FAERS Safety Report 10164787 (Version 1)
Quarter: 2014Q2

REPORT INFORMATION
  Report Type: Spontaneous
  Country: US (occurrence: US)
  Receive Date: 20140510
  Receipt Date: 20140510
  Transmission Date: 20141212
  Serious: No
  Sender: FDA-Public Use
  Company Number: US-BRISTOL-MYERS SQUIBB COMPANY-19625920

PATIENT
  Age: 51 Year
  Sex: Female
  Weight: 95.24 kg

DRUGS (8)
  1. BYDUREON [Suspect]
     Indication: TYPE 2 DIABETES MELLITUS
     Dosage: JUN2013
     Route: 058
     Dates: start: 20131018
  2. SPIRONOLACTONE [Concomitant]
  3. LISINOPRIL [Concomitant]
  4. SIMVASTATIN [Concomitant]
  5. METOPROLOL [Concomitant]
  6. NORTRIPTYLINE [Concomitant]
     Dosage: TAKE 2 AT BEDTIME
  7. LEVOTHYROXINE [Concomitant]
  8. ASPIRIN [Concomitant]

REACTIONS (2)
  - Injection site nodule [Not Recovered/Not Resolved]
  - Injection site haemorrhage [Unknown]
